FAERS Safety Report 10527763 (Version 1)
Quarter: 2014Q4

REPORT INFORMATION
  Report Type: Spontaneous
  Country: US (occurrence: None)
  Receive Date: 20141016
  Receipt Date: 20141016
  Transmission Date: 20150528
  Serious: Yes (Hospitalization)
  Sender: FDA-Public Use
  Company Number: None

PATIENT
  Age: 59 Year
  Sex: Female
  Weight: 48.54 kg

DRUGS (1)
  1. BONIVA [Suspect]
     Active Substance: IBANDRONATE SODIUM
     Indication: OSTEOPENIA
     Route: 048
     Dates: start: 20141002

REACTIONS (9)
  - Chest pain [None]
  - Nausea [None]
  - Speech disorder [None]
  - Arthralgia [None]
  - Dyspnoea [None]
  - Musculoskeletal pain [None]
  - Malaise [None]
  - Muscle spasms [None]
  - Feeling abnormal [None]

NARRATIVE: CASE EVENT DATE: 20141011
